FAERS Safety Report 6167973-0 (Version None)
Quarter: 2009Q2

REPORT INFORMATION
  Report Type: 
  Country: None (occurrence: None)
  Receive Date: 20090427
  Receipt Date: 20090414
  Transmission Date: 20091009
  Serious: Yes (Death, Hospitalization)
  Sender: FDA-Public Use
  Company Number: IT-ROCHE-627381

PATIENT
  Age: 63 Year
  Sex: Male

DRUGS (9)
  1. MYCOPHENOLATE MOFETIL [Suspect]
     Indication: KIDNEY TRANSPLANT REJECTION
     Route: 048
     Dates: start: 20081030, end: 20090202
  2. CP-690550 [Suspect]
     Indication: KIDNEY TRANSPLANT REJECTION
     Route: 048
     Dates: start: 20081030, end: 20090202
  3. PREDNISONE [Suspect]
     Indication: KIDNEY TRANSPLANT REJECTION
     Route: 048
     Dates: start: 20081030, end: 20090202
  4. BACTRIM [Concomitant]
  5. AMLODIPINE [Concomitant]
  6. INSULIN GLARGINE [Concomitant]
  7. CARVEDILOL [Concomitant]
  8. LISINOPRIL [Concomitant]
  9. VALCYTE [Concomitant]

REACTIONS (12)
  - BLOOD CREATININE INCREASED [None]
  - CARDIAC ARREST [None]
  - DEHYDRATION [None]
  - HYPERKALAEMIA [None]
  - HYPOXIA [None]
  - MALAISE [None]
  - METABOLIC ACIDOSIS [None]
  - NEUTROPENIA [None]
  - PNEUMONIA [None]
  - PULMONARY EMBOLISM [None]
  - SEPSIS [None]
  - VOMITING [None]
